FAERS Safety Report 4593934-9 (Version None)
Quarter: 2005Q1

REPORT INFORMATION
  Report Type: 
  Country: None (occurrence: None)
  Receive Date: 20050225
  Receipt Date: 20050209
  Transmission Date: 20050727
  Serious: Yes (Other)
  Sender: FDA-Public Use
  Company Number: TRP_0068_2005

PATIENT
  Sex: Male

DRUGS (7)
  1. RIBASPHERE [Suspect]
     Dosage: 600 MG QDAY PO
     Route: 048
     Dates: end: 20040901
  2. RIBASPHERE [Suspect]
     Dosage: 1200 MG QDAY PO
     Route: 048
  3. RIBASPHERE [Suspect]
     Dosage: 600 MG QDAY PO
     Route: 048
  4. RIBASPHERE [Suspect]
     Dosage: 800 MG QDAY PO
     Route: 048
  5. PEGINTERFERON ALFA-2A/ROCHE [Suspect]
     Dosage: 180 MCG QWK SC
     Route: 058
     Dates: end: 20040901
  6. PEGINTERFERON ALFA-2A/ROCHE [Suspect]
     Dosage: 180 MCG QWK SC
     Route: 058
  7. PEGINTERFERON ALFA-2A/ROCHE [Suspect]
     Dosage: 135 MCG QWK SC
     Route: 058

REACTIONS (2)
  - ANAEMIA [None]
  - BLOOD TESTOSTERONE DECREASED [None]
